FAERS Safety Report 24308043 (Version 2)
Quarter: 2025Q1

REPORT INFORMATION
  Report Type: Report from Study
  Country: US (occurrence: US)
  Receive Date: 20240911
  Receipt Date: 20250304
  Transmission Date: 20250409
  Serious: No
  Sender: SUNOVION
  Company Number: US-SMPA-2024SPA001691AA

PATIENT

DRUGS (3)
  1. ORGOVYX [Suspect]
     Active Substance: RELUGOLIX
     Indication: Prostate cancer
     Route: 048
  2. ORGOVYX [Suspect]
     Active Substance: RELUGOLIX
     Dosage: 120 MG, QD
     Route: 048
     Dates: start: 20240207
  3. ERLEADA [Suspect]
     Active Substance: APALUTAMIDE
     Route: 065

REACTIONS (4)
  - Brain fog [Unknown]
  - Balance disorder [Unknown]
  - Bone pain [Unknown]
  - Fatigue [Unknown]
